FAERS Safety Report 9184506 (Version 1)
Quarter: 2013Q1

REPORT INFORMATION
  Report Type: Spontaneous
  Country: None (occurrence: US)
  Receive Date: 20130322
  Receipt Date: 20130322
  Transmission Date: 20140127
  Serious: No
  Sender: FDA-Public Use
  Company Number: US-FOUGERA-2012FO001223

PATIENT
  Sex: Female

DRUGS (3)
  1. CLOBETASOL PROPIONATE [Suspect]
     Indication: ECZEMA
     Route: 061
     Dates: start: 201206, end: 201206
  2. OMEPRAZOLE [Concomitant]
     Indication: GASTRIC DISORDER
  3. TOPROL [Concomitant]
     Indication: HEART RATE ABNORMAL

REACTIONS (2)
  - Application site vesicles [Recovered/Resolved]
  - Application site exfoliation [Recovered/Resolved]
